FAERS Safety Report 9641392 (Version 1)
Quarter: 2013Q4

REPORT INFORMATION
  Report Type: Spontaneous
  Country: US (occurrence: US)
  Receive Date: 20131023
  Receipt Date: 20131023
  Transmission Date: 20140711
  Serious: No
  Sender: FDA-Public Use
  Company Number: US-ABBVIE-13P-163-1153647-00

PATIENT
  Sex: Female

DRUGS (2)
  1. LUPRON DEPOT [Suspect]
     Indication: ENDOMETRIOSIS
     Route: 030
     Dates: start: 201309
  2. NORETHINDRONE ACETATE [Suspect]
     Indication: SUPPLEMENTATION THERAPY
     Route: 048
     Dates: start: 201309, end: 201309

REACTIONS (1)
  - Chest pain [Recovered/Resolved]
